FAERS Safety Report 9468670 (Version 2)
Quarter: 2013Q3

REPORT INFORMATION
  Report Type: Spontaneous
  Country: US (occurrence: US)
  Receive Date: 20130821
  Receipt Date: 20130903
  Transmission Date: 20140515
  Serious: Yes (Hospitalization)
  Sender: FDA-Public Use
  Company Number: US-BAXTER-2013BAX032516

PATIENT
  Age: 44 Year
  Sex: Male

DRUGS (3)
  1. DIANEAL LOW CALCIUM [Suspect]
     Indication: PERITONEAL DIALYSIS
     Dosage: 2 BIG BAGS
     Route: 033
     Dates: start: 201204
  2. DIANEAL LOW CALCIUM [Suspect]
     Indication: PERITONEAL DIALYSIS
     Route: 033
     Dates: start: 201204
  3. EXTRANEAL [Suspect]
     Indication: PERITONEAL DIALYSIS
     Dosage: 1 BAG/DAY
     Route: 033
     Dates: start: 201204

REACTIONS (2)
  - Genital abscess [Recovering/Resolving]
  - Infection [Recovering/Resolving]
